FAERS Safety Report 8985628 (Version 1)
Quarter: 2012Q4

REPORT INFORMATION
  Report Type: 
  Country: US (occurrence: US)
  Receive Date: 20121226
  Receipt Date: 20121226
  Transmission Date: 20130627
  Serious: No
  Sender: FDA-Public Use
  Company Number: US-ABBOTT-12P-163-0951100-00

PATIENT

DRUGS (1)
  1. LUPRON DEPOT 45 MG [Suspect]
     Indication: PRODUCT USED FOR UNKNOWN INDICATION
     Dosage: 6 Month 45 mg
     Route: 030

REACTIONS (2)
  - Syringe issue [Recovered/Resolved]
  - Device issue [Recovered/Resolved]
